FAERS Safety Report 23122859 (Version 2)
Quarter: 2023Q4

REPORT INFORMATION
  Report Type: Spontaneous
  Country: GB (occurrence: GB)
  Receive Date: 20231030
  Receipt Date: 20231114
  Transmission Date: 20240110
  Serious: Yes (Hospitalization, Other)
  Sender: FDA-Public Use
  Company Number: GB-ALXN-A202213799

PATIENT
  Age: 60 Year
  Sex: Female

DRUGS (6)
  1. ALENDRONIC ACID [Suspect]
     Active Substance: ALENDRONIC ACID
     Indication: Product used for unknown indication
     Dosage: UNK UNK, EVERY WEEK
     Route: 065
     Dates: start: 202309
  2. GLICLAZIDE [Suspect]
     Active Substance: GLICLAZIDE
     Indication: Product used for unknown indication
     Dosage: UNK
     Route: 065
  3. CALCIUM\CHOLECALCIFEROL [Suspect]
     Active Substance: CALCIUM\CHOLECALCIFEROL
     Indication: Product used for unknown indication
     Dosage: UNK UNK, TWO TIMES A DAY
     Route: 065
     Dates: start: 202309
  4. LETROZOLE [Suspect]
     Active Substance: LETROZOLE
     Indication: Breast cancer
     Dosage: UNK
     Route: 065
     Dates: start: 2023
  5. ULTOMIRIS [Suspect]
     Active Substance: RAVULIZUMAB-CWVZ
     Indication: Paroxysmal nocturnal haemoglobinuria
     Dosage: 3300 MG, 8 WEEKLY
     Route: 042
  6. PENICILLIN [Concomitant]
     Active Substance: PENICILLIN
     Indication: Product used for unknown indication
     Dosage: UNK UNK, TWO TIMES A DAY
     Route: 065

REACTIONS (19)
  - Abdominal pain [Unknown]
  - Breast cancer [Unknown]
  - Back pain [Not Recovered/Not Resolved]
  - Breast pain [Unknown]
  - Blood glucose increased [Unknown]
  - Cataract [Unknown]
  - Constipation [Unknown]
  - Dyspnoea [Not Recovered/Not Resolved]
  - Dyspnoea exertional [Recovering/Resolving]
  - Fatigue [Not Recovered/Not Resolved]
  - Heart rate increased [Unknown]
  - Joint stiffness [Not Recovered/Not Resolved]
  - Klebsiella test positive [Unknown]
  - Muscle spasms [Unknown]
  - Myalgia [Unknown]
  - Musculoskeletal stiffness [Not Recovered/Not Resolved]
  - Poor venous access [Unknown]
  - Rash [Unknown]
  - Urinary tract infection [Recovered/Resolved]
